FAERS Safety Report 6906456-4 (Version None)
Quarter: 2010Q3

REPORT INFORMATION
  Report Type: 
  Country: None (occurrence: None)
  Receive Date: 20100804
  Receipt Date: 20100723
  Transmission Date: 20110219
  Serious: Yes (Hospitalization)
  Sender: FDA-Public Use
  Company Number: GB-JNJFOC-20100704492

PATIENT
  Sex: Female

DRUGS (14)
  1. GOLIMUMAB [Suspect]
     Indication: RHEUMATOID ARTHRITIS
     Route: 058
  2. GOLIMUMAB [Suspect]
     Route: 058
  3. PLACEBO [Suspect]
     Indication: RHEUMATOID ARTHRITIS
     Route: 058
  4. IBUPROFEN TABLETS [Concomitant]
     Route: 048
  5. TRAMADOL HYDROCHLORIDE [Concomitant]
     Route: 048
  6. NAPROXEN [Concomitant]
     Route: 048
  7. LANSOPRAZOLE [Concomitant]
     Route: 048
  8. PREDNISOLONE [Concomitant]
     Route: 048
  9. ARCOXIA [Concomitant]
     Route: 048
  10. AMITRIPTYLINE HYDROCHLORIDE [Concomitant]
     Route: 048
  11. ATENOLOL [Concomitant]
     Route: 048
  12. CERAZETTE [Concomitant]
     Route: 048
  13. ADCAL-D3 [Concomitant]
     Route: 048
  14. ACETAMINOPHEN [Concomitant]
     Route: 048

REACTIONS (2)
  - PLEURAL DISORDER [None]
  - PLEURITIC PAIN [None]
